FAERS Safety Report 7588408-7 (Version None)
Quarter: 2011Q3

REPORT INFORMATION
  Report Type: 
  Country: None (occurrence: None)
  Receive Date: 20110705
  Receipt Date: 20110621
  Transmission Date: 20111222
  Serious: Yes (Other)
  Sender: FDA-Public Use
  Company Number: HK-RANBAXY-2011RR-45729

PATIENT
  Age: 63 Year
  Sex: Female

DRUGS (4)
  1. SIMVASTATIN [Suspect]
     Dosage: 40 MG/DAY
  2. SIMVASTATIN [Suspect]
     Dosage: 80 MG/DAY
  3. DILTIAZEM [Suspect]
     Indication: HYPERTENSION
     Dosage: 90 MG, BID
  4. ENALAPRIL MALEATE [Concomitant]
     Indication: HYPERTENSION
     Route: 065

REACTIONS (3)
  - DRUG INTERACTION [None]
  - MUSCLE DISORDER [None]
  - BLOOD CREATINE PHOSPHOKINASE INCREASED [None]
